FAERS Safety Report 15261415 (Version 8)
Quarter: 2019Q4

REPORT INFORMATION
  Report Type: Spontaneous
  Country: BR (occurrence: BR)
  Receive Date: 20180809
  Receipt Date: 20191122
  Transmission Date: 20200122
  Serious: Yes (Hospitalization, Other)
  Sender: FDA-Public Use
  Company Number: BR-GLAXOSMITHKLINE-BR2017GSK151947

PATIENT
  Age: 41 Year
  Sex: Female
  Weight: 68 kg

DRUGS (2)
  1. BENLYSTA [Suspect]
     Active Substance: BELIMUMAB
     Indication: SYSTEMIC LUPUS ERYTHEMATOSUS
     Dosage: 680 MG, UNK
     Dates: start: 20170919
  2. BENLYSTA [Suspect]
     Active Substance: BELIMUMAB
     Dosage: 680 MG, UNK

REACTIONS (13)
  - Nasopharyngitis [Unknown]
  - Pyrexia [Unknown]
  - Inappropriate schedule of product administration [Recovered/Resolved]
  - Fatigue [Unknown]
  - Skin disorder [Unknown]
  - Influenza [Unknown]
  - Condition aggravated [Unknown]
  - Circumstance or information capable of leading to medication error [Recovered/Resolved]
  - Hypersensitivity [Unknown]
  - Renal stone removal [Recovered/Resolved]
  - Urinary tract infection [Unknown]
  - Product dose omission [Not Recovered/Not Resolved]
  - Product availability issue [Unknown]

NARRATIVE: CASE EVENT DATE: 20180713
